FAERS Safety Report 9808887 (Version 1)
Quarter: 2014Q1

REPORT INFORMATION
  Report Type: Spontaneous
  Country: US (occurrence: US)
  Receive Date: 20140110
  Receipt Date: 20140110
  Transmission Date: 20141002
  Serious: No
  Sender: FDA-Public Use
  Company Number: US-ROXANE LABORATORIES, INC.-2014-RO-00025RO

PATIENT
  Age: 85 Year
  Sex: Female

DRUGS (2)
  1. FLUTICASONE [Suspect]
     Indication: SINUSITIS
     Route: 045
     Dates: start: 20140108, end: 20140109
  2. ANTIBIOTICS [Concomitant]
     Indication: SINUSITIS

REACTIONS (2)
  - Conjunctivitis [Not Recovered/Not Resolved]
  - Epistaxis [Recovered/Resolved]
